FAERS Safety Report 11398009 (Version 7)
Quarter: 2016Q4

REPORT INFORMATION
  Report Type: Report from Study
  Country: US (occurrence: US)
  Receive Date: 20150820
  Receipt Date: 20161020
  Transmission Date: 20170206
  Serious: Yes (Other)
  Sender: FDA-Public Use
  Company Number: PHHY2015US098304

PATIENT
  Age: 62 Year
  Sex: Female

DRUGS (1)
  1. GILENYA [Suspect]
     Active Substance: FINGOLIMOD HYDROCHLORIDE
     Indication: MULTIPLE SCLEROSIS
     Dosage: 0.5 MG, QD
     Route: 048

REACTIONS (26)
  - Headache [Unknown]
  - Haemangioma of skin [Unknown]
  - Weight increased [Recovered/Resolved]
  - Multiple sclerosis [Unknown]
  - Lymphoedema [Unknown]
  - Paraesthesia [Unknown]
  - Seasonal allergy [Unknown]
  - Muscular weakness [Unknown]
  - Fibrous histiocytoma [Unknown]
  - Lentigo [Unknown]
  - Pain [Unknown]
  - Headache [Recovered/Resolved]
  - Cafe au lait spots [Unknown]
  - Seborrhoeic keratosis [Unknown]
  - Eye pain [Unknown]
  - High density lipoprotein increased [Unknown]
  - Fatigue [Unknown]
  - Gait disturbance [Unknown]
  - Coordination abnormal [Unknown]
  - Dizziness [Unknown]
  - Xerosis [Unknown]
  - Melanocytic naevus [Unknown]
  - Mean cell volume decreased [Unknown]
  - Vitamin D deficiency [Unknown]
  - Hypoaesthesia [Unknown]
  - Mean cell haemoglobin decreased [Unknown]

NARRATIVE: CASE EVENT DATE: 20140516
